FAERS Safety Report 4522249-X (Version None)
Quarter: 2004Q4

REPORT INFORMATION
  Report Type: 
  Country: None (occurrence: None)
  Receive Date: 20041209
  Receipt Date: 20020913
  Transmission Date: 20050328
  Serious: Yes (Other)
  Sender: FDA-Public Use
  Company Number: US-GLAXOSMITHKLINE-A0380945A

PATIENT
  Age: 43 Year
  Sex: Male
  Weight: 73.6 kg

DRUGS (5)
  1. PAXIL [Suspect]
     Indication: ANXIETY
     Dosage: 40MG PER DAY
     Route: 048
     Dates: start: 19940101, end: 20021001
  2. PAXIL CR [Suspect]
     Indication: ANXIETY
     Dosage: 37.5MG PER DAY
     Route: 048
     Dates: start: 20021001
  3. XANAX [Suspect]
     Indication: ANXIETY
     Route: 048
     Dates: start: 20000101, end: 20030401
  4. KLONOPIN [Concomitant]
     Indication: ANXIETY
     Route: 048
     Dates: start: 20021201
  5. PREVACID [Concomitant]
     Dosage: 30MG PER DAY
     Route: 048
     Dates: start: 20000101

REACTIONS (30)
  - ABDOMINAL PAIN [None]
  - AGGRESSION [None]
  - AGITATION [None]
  - ANXIETY [None]
  - ASTHENIA [None]
  - CONFUSIONAL STATE [None]
  - DEPRESSION [None]
  - DIARRHOEA [None]
  - DISTURBANCE IN ATTENTION [None]
  - DIZZINESS [None]
  - DRUG WITHDRAWAL SYNDROME [None]
  - FATIGUE [None]
  - HEADACHE [None]
  - HYPERHIDROSIS [None]
  - INFLUENZA [None]
  - INSOMNIA [None]
  - LETHARGY [None]
  - MEMORY IMPAIRMENT [None]
  - MIGRAINE [None]
  - NAUSEA [None]
  - NERVOUSNESS [None]
  - NIGHT SWEATS [None]
  - NIGHTMARE [None]
  - PARAESTHESIA [None]
  - SLEEP DISORDER [None]
  - SUICIDAL IDEATION [None]
  - SUICIDE ATTEMPT [None]
  - TREMOR [None]
  - VERTIGO [None]
  - VOMITING [None]
